FAERS Safety Report 8790637 (Version 1)
Quarter: 2012Q4

REPORT INFORMATION
  Report Type: Spontaneous
  Country: CH (occurrence: None)
  Receive Date: 20120907
  Receipt Date: 20120907
  Transmission Date: 20130627
  Serious: Yes (Other)
  Sender: FDA-Public Use
  Company Number: 20120537

PATIENT
  Age: 62 Year
  Sex: Male

DRUGS (2)
  1. VENOFER [Suspect]
     Dosage: over 2 hrs
     Dates: start: 20120709, end: 20120709
  2. PREDNISONE [Concomitant]

REACTIONS (4)
  - Malaise [None]
  - Abdominal pain [None]
  - Tremor [None]
  - Infusion related reaction [None]
